FAERS Safety Report 5110651-7 (Version None)
Quarter: 2006Q3

REPORT INFORMATION
  Report Type: 
  Country: None (occurrence: None)
  Receive Date: 20060919
  Receipt Date: 20060905
  Transmission Date: 20061208
  Serious: Yes (Other)
  Sender: FDA-Public Use
  Company Number: 30421

PATIENT
  Sex: Male

DRUGS (1)
  1. ACETYLCYSTEINE SOLUTION USP 20%/30ML - BEDFORD LABS, INC. [Suspect]
     Indication: CATHETERISATION CARDIAC
     Dosage: PRE-CATHETERIZATION - 3ML BID X
     Dates: start: 20060904

REACTIONS (2)
  - INCORRECT DOSE ADMINISTERED [None]
  - MEDICATION ERROR [None]
